FAERS Safety Report 8224361-0 (Version None)
Quarter: 2012Q1

REPORT INFORMATION
  Report Type: 
  Country: None (occurrence: None)
  Receive Date: 20120307
  Receipt Date: 20110518
  Transmission Date: 20120608
  Serious: No
  Sender: FDA-Public Use
  Company Number: PHHY2011US06790

PATIENT
  Age: 22 Year
  Sex: Male
  Weight: 69.1 kg

DRUGS (2)
  1. LAMICTAL [Concomitant]
  2. AFINITOR [Suspect]
     Indication: TUBEROUS SCLEROSIS
     Dosage: 5 MG DAILY, ORAL
     Route: 048
     Dates: start: 20110101

REACTIONS (5)
  - PYREXIA [None]
  - FEELING HOT [None]
  - NASAL CONGESTION [None]
  - DIARRHOEA [None]
  - DISCOMFORT [None]
